FAERS Safety Report 10036504 (Version 3)
Quarter: 2014Q2

REPORT INFORMATION
  Report Type: Spontaneous
  Country: MX (occurrence: MX)
  Receive Date: 20140326
  Receipt Date: 20140402
  Transmission Date: 20141212
  Serious: Yes (Hospitalization, Other)
  Sender: FDA-Public Use
  Company Number: PHHY2013MX077049

PATIENT
  Sex: Male

DRUGS (6)
  1. STALEVO [Suspect]
     Indication: PARKINSON^S DISEASE
     Dosage: 3 DF (200/150/37.5 MG) DAILY
     Route: 048
     Dates: start: 200903, end: 201312
  2. STALEVO [Suspect]
     Dosage: UNK DF, (UNK/50/UNK MG) DAILY
     Route: 048
     Dates: start: 201312
  3. STALEVO [Suspect]
     Dosage: UNK DF, (UNK/100MG/UNK MG) DAILY
     Route: 048
  4. CRESTOR [Concomitant]
     Indication: CARDIAC DISORDER
     Dosage: 1 DF, QD
  5. AMLODIPINE [Concomitant]
     Indication: HYPERTENSION
     Dosage: 1 DF, QD
  6. OMEPRAZOLE [Concomitant]
     Indication: GASTRIC DISORDER
     Dosage: 2 DF, QD

REACTIONS (12)
  - Respiratory disorder [Not Recovered/Not Resolved]
  - Arrhythmia [Not Recovered/Not Resolved]
  - General physical health deterioration [Not Recovered/Not Resolved]
  - Disease recurrence [Unknown]
  - Depression [Not Recovered/Not Resolved]
  - Weight decreased [Not Recovered/Not Resolved]
  - Nervousness [Not Recovered/Not Resolved]
  - Incoherent [Not Recovered/Not Resolved]
  - Malaise [Unknown]
  - Hallucination, visual [Not Recovered/Not Resolved]
  - Anxiety [Not Recovered/Not Resolved]
  - Drug ineffective [Not Recovered/Not Resolved]
